FAERS Safety Report 13497825 (Version 1)
Quarter: 2017Q2

REPORT INFORMATION
  Report Type: Spontaneous
  Country: US (occurrence: US)
  Receive Date: 20170428
  Receipt Date: 20170428
  Transmission Date: 20170830
  Serious: Yes (Hospitalization)
  Sender: FDA-Public Use
  Company Number: US-TEVA-763381USA

PATIENT

DRUGS (7)
  1. FLUOROURACIL. [Suspect]
     Active Substance: FLUOROURACIL
     Indication: HEPATIC CANCER
     Route: 065
     Dates: start: 201611, end: 201701
  2. FOLINIC ACID [Suspect]
     Active Substance: LEUCOVORIN
     Indication: HEPATIC CANCER
     Route: 065
     Dates: start: 201611, end: 201701
  3. GEMZAR [Suspect]
     Active Substance: GEMCITABINE HYDROCHLORIDE
     Route: 065
     Dates: start: 20170126, end: 201704
  4. OXALIPLATIN INJECTION 50MG/10 ML+100MG/20ML [Suspect]
     Active Substance: OXALIPLATIN
     Indication: HEPATIC CANCER
     Route: 065
     Dates: start: 201611, end: 201701
  5. IRINOTECAN [Suspect]
     Active Substance: IRINOTECAN
     Indication: HEPATIC CANCER
     Route: 065
     Dates: start: 201611, end: 201701
  6. CISPLATIN. [Suspect]
     Active Substance: CISPLATIN
     Indication: HEPATIC CANCER
     Route: 065
     Dates: start: 20160919, end: 201611
  7. GEMZAR [Suspect]
     Active Substance: GEMCITABINE HYDROCHLORIDE
     Indication: HEPATIC CANCER
     Route: 065
     Dates: start: 20160919, end: 201611

REACTIONS (1)
  - Drug ineffective [Unknown]
